FAERS Safety Report 9631227 (Version 2)
Quarter: 2013Q4

REPORT INFORMATION
  Report Type: Spontaneous
  Country: US (occurrence: US)
  Receive Date: 20131018
  Receipt Date: 20131204
  Transmission Date: 20140711
  Serious: Yes (Hospitalization, Other)
  Sender: FDA-Public Use
  Company Number: US-BAYER-2013-124272

PATIENT
  Age: 45 Year
  Sex: Female
  Weight: 128.35 kg

DRUGS (10)
  1. YASMIN [Suspect]
     Dosage: UNK
     Dates: start: 200409
  2. ALLEGRA [Concomitant]
     Indication: MULTIPLE ALLERGIES
     Dosage: 180 MG, UNK
  3. FEXOFENADINE [Concomitant]
     Indication: MULTIPLE ALLERGIES
     Dosage: 90 UNK, UNK
  4. SUDAFED [Concomitant]
     Indication: MULTIPLE ALLERGIES
     Dosage: 90 MG, UNK
  5. LEVOXYL [Concomitant]
     Indication: THYROID DISORDER
     Dosage: 150 ?G, UNK
  6. WELLBUTRIN [Concomitant]
     Indication: ANTIDEPRESSANT THERAPY
     Dosage: 150 MG, UNK
  7. RHINOCORT [Concomitant]
  8. CYMBALTA [Concomitant]
  9. MUCINEX [Concomitant]
     Dosage: 1200 MG, UNK
  10. IBUPROFEN [Concomitant]

REACTIONS (10)
  - Deep vein thrombosis [Recovering/Resolving]
  - Deep vein thrombosis [None]
  - Cholelithiasis [None]
  - Thrombophlebitis superficial [None]
  - Injury [Recovering/Resolving]
  - General physical health deterioration [Recovering/Resolving]
  - Anxiety [None]
  - Emotional distress [None]
  - Pain [None]
  - Pain [Recovering/Resolving]
